FAERS Safety Report 16643961 (Version 2)
Quarter: 2022Q1

REPORT INFORMATION
  Report Type: Spontaneous
  Country: US (occurrence: US)
  Receive Date: 20190729
  Receipt Date: 20220214
  Transmission Date: 20220423
  Serious: No
  Sender: FDA-Public Use
  Company Number: US-JNJFOC-20190729381

PATIENT
  Sex: Male

DRUGS (7)
  1. RISPERDAL [Suspect]
     Active Substance: RISPERIDONE
     Indication: Autism spectrum disorder
     Dosage: 2 TABS IN AM AND 1 TAB IN PM
     Route: 048
  2. RISPERDAL [Suspect]
     Active Substance: RISPERIDONE
     Indication: Behaviour disorder
  3. RISPERDAL M-TAB [Suspect]
     Active Substance: RISPERIDONE
     Indication: Autism spectrum disorder
     Route: 048
  4. RISPERDAL M-TAB [Suspect]
     Active Substance: RISPERIDONE
     Indication: Behaviour disorder
  5. TENEX [Suspect]
     Active Substance: GUANFACINE HYDROCHLORIDE
     Indication: Behaviour disorder
     Dosage: ONE 1/2 TABLET IN MORNING (A.M.) AND 1 TABLET IN THE NIGHT (P.M.)
     Route: 048
  6. TENEX [Suspect]
     Active Substance: GUANFACINE HYDROCHLORIDE
     Indication: Tic
     Dosage: 1 TAB IN AM AND 1 TAB IN PM
     Route: 048
  7. TENEX [Suspect]
     Active Substance: GUANFACINE HYDROCHLORIDE
     Indication: Sleep disorder

REACTIONS (2)
  - Rash [Not Recovered/Not Resolved]
  - Breast enlargement [Not Recovered/Not Resolved]
